FAERS Safety Report 23664402 (Version 1)
Quarter: 2024Q1

REPORT INFORMATION
  Report Type: Spontaneous
  Country: US (occurrence: US)
  Receive Date: 20240322
  Receipt Date: 20240322
  Transmission Date: 20240410
  Serious: Yes (Other)
  Sender: FDA-Public Use
  Company Number: US-SANOFI-01982969

PATIENT
  Sex: Male

DRUGS (2)
  1. FABRAZYME [Suspect]
     Active Substance: AGALSIDASE BETA
     Indication: Fabry^s disease
     Dosage: UNK, QOW
     Dates: start: 2015
  2. FABRAZYME [Suspect]
     Active Substance: AGALSIDASE BETA
     Dosage: SPACED OUT, UNK
     Dates: end: 2019

REACTIONS (6)
  - Anaphylactic reaction [Recovered/Resolved]
  - Ocular hyperaemia [Recovered/Resolved]
  - Chills [Recovered/Resolved]
  - Vomiting [Recovered/Resolved]
  - Generalised oedema [Recovered/Resolved]
  - Inappropriate schedule of product administration [Unknown]
